FAERS Safety Report 19642072 (Version 10)
Quarter: 2022Q3

REPORT INFORMATION
  Report Type: Report from Study
  Country: US (occurrence: US)
  Receive Date: 20210731
  Receipt Date: 20220704
  Transmission Date: 20221026
  Serious: No
  Sender: FDA-Public Use
  Company Number: NVSC2021US157382

PATIENT
  Age: 64 Year
  Sex: Male

DRUGS (3)
  1. ENTRESTO [Suspect]
     Active Substance: SACUBITRIL\VALSARTAN
     Indication: Product used for unknown indication
     Dosage: 200 MG, BID (97/103)
     Route: 048
     Dates: start: 202103
  2. ENTRESTO [Suspect]
     Active Substance: SACUBITRIL\VALSARTAN
     Dosage: UNK
     Route: 065
     Dates: start: 202101
  3. ENTRESTO [Suspect]
     Active Substance: SACUBITRIL\VALSARTAN
     Dosage: UNK UNK, UNKNOWN
     Route: 065

REACTIONS (17)
  - Depression [Recovering/Resolving]
  - Dyspnoea [Unknown]
  - Wheezing [Recovering/Resolving]
  - Weight increased [Recovering/Resolving]
  - Spondylitis [Unknown]
  - Heart rate increased [Unknown]
  - Overweight [Unknown]
  - Somnolence [Unknown]
  - Decreased activity [Unknown]
  - Throat clearing [Unknown]
  - Ligament sprain [Unknown]
  - Seasonal allergy [Not Recovered/Not Resolved]
  - Malaise [Unknown]
  - Fall [Unknown]
  - Feeling abnormal [Unknown]
  - Product dose omission issue [Unknown]
  - Hypersensitivity [Recovering/Resolving]

NARRATIVE: CASE EVENT DATE: 20220330
